FAERS Safety Report 18633703 (Version 4)
Quarter: 2021Q2

REPORT INFORMATION
  Report Type: Report from Study
  Country: None (occurrence: CO)
  Receive Date: 20201218
  Receipt Date: 20210613
  Transmission Date: 20210717
  Serious: Yes (Other)
  Sender: FDA-Public Use
  Company Number: CO-ABBVIE-20K-036-3694339-00

PATIENT
  Age: 41 Year
  Sex: Female

DRUGS (2)
  1. ZEMPLAR [Suspect]
     Active Substance: PARICALCITOL
     Indication: HYPERPARATHYROIDISM SECONDARY
     Route: 042
     Dates: start: 20190314, end: 20210529
  2. ZEMPLAR [Suspect]
     Active Substance: PARICALCITOL
     Indication: CHRONIC KIDNEY DISEASE
     Route: 042

REACTIONS (12)
  - Skin laceration [Recovering/Resolving]
  - Neuropathy peripheral [Unknown]
  - Thirst [Recovering/Resolving]
  - Localised infection [Recovering/Resolving]
  - Mobility decreased [Recovering/Resolving]
  - Blood parathyroid hormone abnormal [Recovering/Resolving]
  - Drug ineffective [Recovering/Resolving]
  - Feeling hot [Recovering/Resolving]
  - Fistula [Recovering/Resolving]
  - Arthralgia [Not Recovered/Not Resolved]
  - Pain in extremity [Recovered/Resolved]
  - Pain in extremity [Not Recovered/Not Resolved]

NARRATIVE: CASE EVENT DATE: 202001
